FAERS Safety Report 4969278-X (Version None)
Quarter: 2006Q2

REPORT INFORMATION
  Report Type: 
  Country: None (occurrence: None)
  Receive Date: 20060405
  Receipt Date: 20060324
  Transmission Date: 20061013
  Serious: Yes (Other)
  Sender: FDA-Public Use
  Company Number: 2006019903

PATIENT
  Age: 85 Year
  Sex: Female

DRUGS (1)
  1. XALATAN [Suspect]
     Indication: ABNORMAL SENSATION IN EYE
     Dosage: 2 DROP (1 DROP, 1 IN 1 D), OPHTHALMIC
     Route: 047

REACTIONS (2)
  - HIP FRACTURE [None]
  - REFUSAL OF TREATMENT BY PATIENT [None]
